FAERS Safety Report 4989161-3 (Version None)
Quarter: 2006Q2

REPORT INFORMATION
  Report Type: 
  Country: None (occurrence: None)
  Receive Date: 20060425
  Receipt Date: 20060411
  Transmission Date: 20061013
  Serious: Yes (Disabling, Other)
  Sender: FDA-Public Use
  Company Number: 2006050913

PATIENT
  Age: 34 Year
  Sex: Female
  Weight: 115.2136 kg

DRUGS (2)
  1. ZOLOFT [Suspect]
     Indication: DEPRESSION
     Dosage: 50 MG (50 MG, QD INTERVAL: EVERY DAY) UNKNOWN
     Dates: start: 19980101
  2. ORTHO CYCLEN-21 [Concomitant]

REACTIONS (5)
  - ACCIDENT [None]
  - COMPLEX REGIONAL PAIN SYNDROME [None]
  - CONTUSION [None]
  - LIMB CRUSHING INJURY [None]
  - NEURALGIA [None]
